FAERS Safety Report 14662864 (Version 1)
Quarter: 2018Q1

REPORT INFORMATION
  Report Type: Report from Study
  Country: US (occurrence: US)
  Receive Date: 20180321
  Receipt Date: 20180321
  Transmission Date: 20180509
  Serious: Yes (Hospitalization)
  Sender: FDA-Public Use
  Company Number: US-ROCHE-2090100

PATIENT
  Age: 39 Year
  Sex: Female

DRUGS (2)
  1. ERLOTINIB [Suspect]
     Active Substance: ERLOTINIB
     Indication: HEREDITARY LEIOMYOMATOSIS RENAL CELL CARCINOMA
     Route: 065
     Dates: start: 20170914
  2. BEVACIZUMAB. [Suspect]
     Active Substance: BEVACIZUMAB
     Indication: HEREDITARY LEIOMYOMATOSIS RENAL CELL CARCINOMA
     Route: 042
     Dates: start: 20170914

REACTIONS (1)
  - Bone pain [Unknown]

NARRATIVE: CASE EVENT DATE: 20180312
